FAERS Safety Report 5742194-1 (Version None)
Quarter: 2008Q2

REPORT INFORMATION
  Report Type: 
  Country: None (occurrence: None)
  Receive Date: 20080515
  Receipt Date: 20080430
  Transmission Date: 20081010
  Serious: Yes (Disabling)
  Sender: FDA-Public Use
  Company Number: APP200800190

PATIENT
  Age: 28 Year
  Sex: Male

DRUGS (3)
  1. SENSORCAINE-MPF WITH EPINEPHRINE          (BUPIVACAINE HYDROCHLORIDE) [Suspect]
     Indication: MUSCULOSKELETAL PAIN
     Dosage: 30 ML, LOCALLY, INJECTION
     Dates: start: 20040930, end: 20040930
  2. XYLOCAINE W/ EPINEPHRENE [Suspect]
     Indication: MUSCULOSKELETAL PAIN
     Dosage: 250 ML, CONTINUOUS VIA PAIN PUMP, INJECTION
     Dates: start: 20040930
  3. STRYKER PAIN PUMP [Suspect]
     Indication: MUSCULOSKELETAL PAIN
     Dates: start: 20040930

REACTIONS (3)
  - CHONDROLYSIS [None]
  - MOVEMENT DISORDER [None]
  - MUSCULOSKELETAL PAIN [None]
